FAERS Safety Report 7494091-1 (Version None)
Quarter: 2011Q2

REPORT INFORMATION
  Report Type: 
  Country: None (occurrence: None)
  Receive Date: 20110520
  Receipt Date: 20110506
  Transmission Date: 20111010
  Serious: Yes (Life-Threatening)
  Sender: FDA-Public Use
  Company Number: FR-ALEXION-A201100694

PATIENT
  Sex: Female

DRUGS (9)
  1. SOLIRIS [Suspect]
     Dosage: 900 MG, UNK
     Route: 042
     Dates: start: 20110128
  2. CELLCEPT [Concomitant]
  3. EUPRESSYL [Concomitant]
     Indication: HYPERTENSION
     Dosage: UNK
     Dates: start: 20101101
  4. AMLODIPINE BESYLATE [Concomitant]
     Indication: HYPERTENSION
     Dosage: UNK
     Dates: start: 20101101
  5. TENORMIN [Concomitant]
     Indication: HYPERTENSION
     Dosage: UNK
     Dates: start: 20101101
  6. SOLIRIS [Suspect]
     Indication: HAEMOLYTIC URAEMIC SYNDROME
     Dosage: 900 MG, QW
     Route: 042
     Dates: start: 20100920, end: 20101013
  7. PROGRAF [Concomitant]
  8. PREDNISONE [Concomitant]
  9. SOLIRIS [Suspect]
     Dosage: 1200 MG, Q2W
     Route: 042
     Dates: start: 20101104

REACTIONS (1)
  - PULMONARY EMBOLISM [None]
